FAERS Safety Report 4696752-6 (Version None)
Quarter: 2005Q2

REPORT INFORMATION
  Report Type: 
  Country: None (occurrence: None)
  Receive Date: 20050620
  Receipt Date: 20050606
  Transmission Date: 20051028
  Serious: Yes (Hospitalization, Other)
  Sender: FDA-Public Use
  Company Number: 17867-1

PATIENT
  Age: 69 Year
  Sex: Female
  Weight: 65.7716 kg

DRUGS (1)
  1. DAUNORUBICIN HCL [Suspect]
     Indication: ACUTE MYELOID LEUKAEMIA
     Dosage: 45MG/M2 OTHER
     Route: 050
     Dates: start: 20050321

REACTIONS (7)
  - ANOREXIA [None]
  - CATHETER RELATED INFECTION [None]
  - CATHETER SITE PHLEBITIS [None]
  - DEHYDRATION [None]
  - HYPOTENSION [None]
  - STOMATITIS [None]
  - WEIGHT DECREASED [None]
